FAERS Safety Report 9312510 (Version 1)
Quarter: 2013Q2

REPORT INFORMATION
  Report Type: Spontaneous
  Country: US (occurrence: US)
  Receive Date: 20130528
  Receipt Date: 20130528
  Transmission Date: 20140414
  Serious: Yes (Other)
  Sender: FDA-Public Use
  Company Number: US-TEVA-408191USA

PATIENT
  Sex: Male

DRUGS (2)
  1. TRAZODONE [Suspect]
     Route: 065
  2. TRAZODONE [Suspect]
     Route: 065

REACTIONS (3)
  - Necrosis [Unknown]
  - Osteoporosis [Unknown]
  - Blood calcium decreased [Unknown]
